FAERS Safety Report 13733722 (Version 1)
Quarter: 2017Q3

REPORT INFORMATION
  Report Type: Spontaneous
  Country: FR (occurrence: FR)
  Receive Date: 20170707
  Receipt Date: 20170707
  Transmission Date: 20171127
  Serious: Yes (Hospitalization)
  Sender: FDA-Public Use
  Company Number: FR-009507513-1707FRA000046

PATIENT
  Age: 95 Year
  Sex: Female

DRUGS (2)
  1. KEYTRUDA [Suspect]
     Active Substance: PEMBROLIZUMAB
     Dosage: 125 MG EVERY 21 DAYS,CYCLE 1 AT 125 MG ON 10-FEB-2016,02-MAR-2016, 13-APR-2016
     Route: 042
     Dates: start: 20160210, end: 20160413
  2. KEYTRUDA [Suspect]
     Active Substance: PEMBROLIZUMAB
     Indication: METASTATIC MALIGNANT MELANOMA
     Dosage: 125 MG EVERY 21 DAYS,CYCLE 1 AT 125 MG ON 10-FEB-2016,02-MAR-2016, 13-APR-2016
     Route: 042
     Dates: start: 20160210, end: 20160413

REACTIONS (1)
  - Adrenal insufficiency [Recovered/Resolved]

NARRATIVE: CASE EVENT DATE: 201605
